FAERS Safety Report 5290352-5 (Version None)
Quarter: 2007Q2

REPORT INFORMATION
  Report Type: 
  Country: None (occurrence: None)
  Receive Date: 20070409
  Receipt Date: 20070327
  Transmission Date: 20071010
  Serious: Yes (Hospitalization)
  Sender: FDA-Public Use
  Company Number: PHMT2007CA00939

PATIENT
  Age: 81 Year
  Sex: Female

DRUGS (1)
  1. AREDIA [Suspect]
     Indication: METASTASES TO BONE
     Dosage: 60 MG, QMO
     Route: 042
     Dates: start: 20070201

REACTIONS (4)
  - EYELID OEDEMA [None]
  - EYELID PTOSIS [None]
  - FACIAL PAIN [None]
  - VISUAL ACUITY REDUCED [None]
